FAERS Safety Report 11880036 (Version 1)
Quarter: 2015Q4

REPORT INFORMATION
  Report Type: Report from Study
  Country: US (occurrence: US)
  Receive Date: 20151230
  Receipt Date: 20151230
  Transmission Date: 20160305
  Serious: Yes (Hospitalization, Other)
  Sender: FDA-Public Use
  Company Number: US-UCBSA-2015042911

PATIENT
  Age: 4 Decade
  Sex: Male

DRUGS (2)
  1. LEVETIRACETAM. [Suspect]
     Active Substance: LEVETIRACETAM
     Indication: SEIZURE
     Dosage: 3 DF DAILY
     Dates: end: 2015
  2. LEVETIRACETAM. [Suspect]
     Active Substance: LEVETIRACETAM
     Dosage: 4 PILLS DAILY
     Dates: start: 2015

REACTIONS (3)
  - Hyponatraemia [Unknown]
  - Drug ineffective [Unknown]
  - Kyphoscoliosis [Unknown]

NARRATIVE: CASE EVENT DATE: 2015
